APPROVED DRUG PRODUCT: TRUSELTIQ
Active Ingredient: INFIGRATINIB PHOSPHATE
Strength: 100MG
Dosage Form/Route: CAPSULE;ORAL
Application: N214622 | Product #002
Applicant: HELSINN HEALTHCARE SA
Approved: May 28, 2021 | RLD: Yes | RS: No | Type: DISCN

PATENTS:
Patent 10278969 | Expires: Dec 11, 2034
Patent 8552002 | Expires: Aug 25, 2029
Patent 9067896 | Expires: Aug 6, 2028
Patent 11160804 | Expires: Dec 11, 2034

EXCLUSIVITY:
Code: NCE | Date: May 28, 2026
Code: ODE-353 | Date: May 28, 2028